FAERS Safety Report 12228609 (Version 1)
Quarter: 2016Q1

REPORT INFORMATION
  Report Type: Spontaneous
  Country: US (occurrence: None)
  Receive Date: 20160331
  Receipt Date: 20160331
  Transmission Date: 20160526
  Serious: No
  Sender: FDA-Public Use
  Company Number: None

PATIENT
  Age: 37 Year
  Sex: Female
  Weight: 89.36 kg

DRUGS (2)
  1. XARELTO [Suspect]
     Active Substance: RIVAROXABAN
     Indication: THROMBOSIS MESENTERIC VESSEL
     Dosage: 1 TABLET(S) ONCE A DAY TAKEN BY MOUTH
     Route: 048
  2. LEVOTHYROINE [Concomitant]

REACTIONS (9)
  - Somnolence [None]
  - Feeling abnormal [None]
  - Fatigue [None]
  - Headache [None]
  - Therapy cessation [None]
  - Impaired driving ability [None]
  - Visual impairment [None]
  - Vision blurred [None]
  - Chest pain [None]

NARRATIVE: CASE EVENT DATE: 20160319
